FAERS Safety Report 8218656-4 (Version None)
Quarter: 2012Q1

REPORT INFORMATION
  Report Type: 
  Country: None (occurrence: None)
  Receive Date: 20120319
  Receipt Date: 20120309
  Transmission Date: 20120608
  Serious: Yes (Hospitalization)
  Sender: FDA-Public Use
  Company Number: PHHO2012JP004176

PATIENT
  Sex: Female
  Weight: 55 kg

DRUGS (7)
  1. OMNIPAQUE 140 [Concomitant]
  2. BLINDED NO TREATMENT RECEIVED [Suspect]
     Indication: BREAST CANCER
     Dosage: CODE NOT BROKEN
     Route: 048
     Dates: start: 20100907, end: 20120308
  3. BLINDED PLACEBO [Suspect]
     Indication: BREAST CANCER
     Dosage: CODE NOT BROKEN
     Route: 048
     Dates: start: 20100907, end: 20120308
  4. ZOMETA [Suspect]
     Indication: METASTASES TO BONE
     Dosage: CODE NOT BROKEN
     Dates: start: 20100818, end: 20120221
  5. LOXONIN [Concomitant]
     Indication: ANALGESIC THERAPY
     Dosage: UNK
     Dates: start: 20110906
  6. AFINITOR [Suspect]
     Indication: BREAST CANCER
     Dosage: CODE NOT BROKEN
     Route: 048
     Dates: start: 20100907, end: 20120308
  7. EXEMESTANE [Suspect]
     Indication: BREAST CANCER
     Dosage: 25 MG, UNK
     Route: 048
     Dates: start: 20100907, end: 20120308

REACTIONS (1)
  - INTERSTITIAL LUNG DISEASE [None]
